FAERS Safety Report 5820007-7 (Version None)
Quarter: 2008Q3

REPORT INFORMATION
  Report Type: 
  Country: None (occurrence: None)
  Receive Date: 20080718
  Receipt Date: 20080718
  Transmission Date: 20090109
  Serious: Yes (Death)
  Sender: FDA-Public Use
  Company Number: None

PATIENT
  Age: 46 Year
  Sex: Male
  Weight: 94.6 kg

DRUGS (10)
  1. RAPAMUNE [Suspect]
     Indication: RENAL TRANSPLANT
     Dosage: 3MG DAILY PO
     Route: 048
  2. AMLODIPINE BESYLATE AND BENAZEPRIL HCL [Concomitant]
  3. LIPITOR [Concomitant]
  4. CELLCEPT [Concomitant]
  5. CLONIDINE [Concomitant]
  6. LIDOCAINE [Concomitant]
  7. METOPROLOL [Concomitant]
  8. RAPAMUNE [Concomitant]
  9. BACTRIM [Concomitant]
  10. VITAMIN B COMPLEX [Concomitant]

REACTIONS (10)
  - BLOOD CREATININE INCREASED [None]
  - BLOOD TRIGLYCERIDES INCREASED [None]
  - BLOOD UREA INCREASED [None]
  - CARDIAC ARREST [None]
  - GENERAL PHYSICAL HEALTH DETERIORATION [None]
  - HEART RATE INCREASED [None]
  - HYPOXIA [None]
  - LUNG INFILTRATION [None]
  - PANCREATITIS ACUTE [None]
  - PCO2 DECREASED [None]
